FAERS Safety Report 8133065-4 (Version None)
Quarter: 2012Q1

REPORT INFORMATION
  Report Type: 
  Country: None (occurrence: None)
  Receive Date: 20120213
  Receipt Date: 20120202
  Transmission Date: 20120608
  Serious: Yes (Hospitalization)
  Sender: FDA-Public Use
  Company Number: PHHY2011PY106724

PATIENT
  Sex: Female

DRUGS (5)
  1. GLEEVEC [Suspect]
     Dosage: 600 MG, DAILY
     Dates: start: 20111024, end: 20111201
  2. GLEEVEC [Suspect]
     Dosage: 800 MG, UNK
     Dates: start: 20120109
  3. ACYCLOVIR [Concomitant]
     Indication: GENITAL HERPES
     Dosage: 800 MG, UNK
     Dates: start: 20111101
  4. LEVOTIROXINA [Concomitant]
     Indication: HYPOTHYROIDISM
     Dosage: 100 UG, UNK
  5. GLEEVEC [Suspect]
     Indication: CHRONIC MYELOID LEUKAEMIA
     Dosage: 400 MG, DAILY
     Dates: start: 20080512

REACTIONS (17)
  - LEUKOPENIA [None]
  - ANAEMIA [None]
  - THROMBOCYTOPENIA [None]
  - ASTHENIA [None]
  - RASH [None]
  - ALANINE AMINOTRANSFERASE DECREASED [None]
  - METRORRHAGIA [None]
  - VULVAL ULCERATION [None]
  - DECREASED APPETITE [None]
  - MUCOSAL DISCOLOURATION [None]
  - PRURITUS [None]
  - PAIN [None]
  - DRUG INTOLERANCE [None]
  - ASPARTATE AMINOTRANSFERASE DECREASED [None]
  - BLOOD ALKALINE PHOSPHATASE INCREASED [None]
  - SKIN LESION [None]
  - SKIN BURNING SENSATION [None]
